FAERS Safety Report 7920629 (Version 2)
Quarter: 2012Q4

REPORT INFORMATION
  Report Type: 
  Country: US (occurrence: US)
  Receive Date: 20110429
  Receipt Date: 20121016
  Transmission Date: 20130627
  Serious: Yes (Other)
  Sender: FDA-Public Use
  Company Number: US-ROCHE-743261

PATIENT
  Age: 38 None
  Sex: Female
  Weight: 72.6 kg

DRUGS (3)
  1. ACCUTANE [Suspect]
     Indication: ACNE
     Route: 065
     Dates: start: 20070101, end: 20070901
  2. VERAPAMIL [Concomitant]
  3. DYAZIDE [Concomitant]

REACTIONS (5)
  - Colitis ulcerative [Unknown]
  - Gastrointestinal injury [Unknown]
  - Irritable bowel syndrome [Unknown]
  - Lip dry [Unknown]
  - Nasal dryness [Unknown]
